FAERS Safety Report 17924987 (Version 1)
Quarter: 2020Q2

REPORT INFORMATION
  Report Type: Spontaneous
  Country: DE (occurrence: DE)
  Receive Date: 20200622
  Receipt Date: 20200622
  Transmission Date: 20200714
  Serious: Yes (Hospitalization)
  Sender: FDA-Public Use
  Company Number: DE-TEVA-2020-DE-1789117

PATIENT
  Age: 46 Year
  Sex: Male
  Weight: 73.4 kg

DRUGS (9)
  1. TACROLIMUS. [Suspect]
     Active Substance: TACROLIMUS
     Route: 065
  2. MYCOPHENOLSAURE [Suspect]
     Active Substance: MYCOPHENOLIC ACID
     Dosage: 1440 MILLIGRAM DAILY; 720 MG, 1-0-1-0
  3. PANTOPRAZOL [Concomitant]
     Active Substance: PANTOPRAZOLE SODIUM
     Dosage: 40 MILLIGRAM DAILY;  1-0-0-0
  4. SULFAMETHOXAZOL/TRIMETHOPRIM [Concomitant]
     Active Substance: SULFAMETHOXAZOLE\TRIMETHOPRIM
     Dosage: 800 | 160 MG, 1 TABLET TWICE A WEEK IN THE MORNING, UNIT DOSE: 2 DF
  5. PREDNISOLONE. [Suspect]
     Active Substance: PREDNISOLONE
     Dosage: 5 MILLIGRAM DAILY; 1-0-0-0
  6. TAMSULOSIN [Concomitant]
     Active Substance: TAMSULOSIN
     Dosage: .4 MILLIGRAM DAILY; 1-0-0-0
  7. FOLSAURE [Concomitant]
     Active Substance: FOLIC ACID
     Dosage: .4 MILLIGRAM DAILY;  1-0-0-0
  8. FUROSEMID [Concomitant]
     Active Substance: FUROSEMIDE
     Dosage: 40 MG, 0.5-0.5-0-0
  9. AMLODIPIN [Concomitant]
     Active Substance: AMLODIPINE BESYLATE
     Dosage: 5 MG, 1.5-0-0-0

REACTIONS (1)
  - Pyrexia [Unknown]

NARRATIVE: CASE EVENT DATE: 20200202
